FAERS Safety Report 16282324 (Version 2)
Quarter: 2019Q2

REPORT INFORMATION
  Report Type: Spontaneous
  Country: FR (occurrence: FR)
  Receive Date: 20190507
  Receipt Date: 20190509
  Transmission Date: 20190711
  Serious: Yes (Other)
  Sender: FDA-Public Use
  Company Number: FR-009507513-1905FRA000653

PATIENT
  Age: 77 Year
  Sex: Female

DRUGS (9)
  1. DIFFU-K [Concomitant]
     Active Substance: POTASSIUM CHLORIDE
     Route: 048
  2. MORPHINE [Concomitant]
     Active Substance: MORPHINE
     Route: 042
  3. INVANZ [Suspect]
     Active Substance: ERTAPENEM SODIUM
     Indication: SEPSIS
     Route: 042
     Dates: start: 20190324, end: 20190330
  4. PRIMPERAN [Suspect]
     Active Substance: METOCLOPRAMIDE HYDROCHLORIDE
     Indication: NAUSEA
     Route: 042
     Dates: start: 20190307, end: 20190328
  5. CLOXACILLIN [Suspect]
     Active Substance: CLOXACILLIN
     Indication: SEPSIS
     Route: 042
     Dates: start: 20190202, end: 20190402
  6. FUROSEMIDE. [Concomitant]
     Active Substance: FUROSEMIDE
     Route: 042
  7. THERALENE [Suspect]
     Active Substance: TRIMEPRAZINE
     Indication: PRODUCT USED FOR UNKNOWN INDICATION
     Route: 048
     Dates: start: 20190305, end: 20190330
  8. LANSOPRAZOLE. [Concomitant]
     Active Substance: LANSOPRAZOLE
     Route: 048
  9. OFLOXACIN. [Suspect]
     Active Substance: OFLOXACIN
     Indication: SEPSIS
     Route: 042
     Dates: start: 20190312, end: 20190403

REACTIONS (7)
  - Tremor [Recovered/Resolved]
  - Extrapyramidal disorder [Recovered/Resolved]
  - Hallucination, visual [Recovered/Resolved]
  - Hallucination, auditory [Recovered/Resolved]
  - Dyskinesia [Recovered/Resolved]
  - Confusional state [Recovered/Resolved]
  - Tachyphrenia [Recovered/Resolved]

NARRATIVE: CASE EVENT DATE: 20190328
